FAERS Safety Report 22257265 (Version 1)
Quarter: 2023Q2

REPORT INFORMATION
  Report Type: Spontaneous
  Country: US (occurrence: US)
  Receive Date: 20230427
  Receipt Date: 20230427
  Transmission Date: 20230722
  Serious: No
  Sender: FDA-Public Use
  Company Number: US-AMGEN-USASP2023070868

PATIENT
  Sex: Male
  Weight: 74.84 kg

DRUGS (1)
  1. MVASI [Suspect]
     Active Substance: BEVACIZUMAB-AWWB
     Indication: Renal cell carcinoma
     Dosage: 400 MILLIGRAM
     Route: 065

REACTIONS (1)
  - Accidental exposure to product [Unknown]
